FAERS Safety Report 24750970 (Version 1)
Quarter: 2024Q4

REPORT INFORMATION
  Report Type: Spontaneous
  Country: US (occurrence: US)
  Receive Date: 20241219
  Receipt Date: 20241219
  Transmission Date: 20250115
  Serious: Yes (Other)
  Sender: SPECGX
  Company Number: US-SPECGX-T202402322

PATIENT
  Age: 62 Year
  Sex: Female
  Weight: 63 kg

DRUGS (2)
  1. PAMELOR [Suspect]
     Active Substance: NORTRIPTYLINE HYDROCHLORIDE
     Indication: Neuropathy peripheral
     Dosage: 50 MILLIGRAM, QD
     Route: 048
     Dates: start: 2023, end: 2024
  2. MORPHINE [Suspect]
     Active Substance: MORPHINE
     Indication: Product used for unknown indication
     Dosage: UNK
     Route: 065

REACTIONS (3)
  - Adrenal insufficiency [Unknown]
  - Oedema peripheral [Not Recovered/Not Resolved]
  - Product use in unapproved indication [Unknown]

NARRATIVE: CASE EVENT DATE: 20240615
